FAERS Safety Report 23076408 (Version 1)
Quarter: 2023Q4

REPORT INFORMATION
  Report Type: Spontaneous
  Country: BE (occurrence: BE)
  Receive Date: 20231017
  Receipt Date: 20231017
  Transmission Date: 20240109
  Serious: Yes (Other)
  Sender: FDA-Public Use
  Company Number: BE-BoehringerIngelheim-2023-BI-266670

PATIENT
  Age: 70 Year
  Sex: Male

DRUGS (2)
  1. JARDIANCE [Suspect]
     Active Substance: EMPAGLIFLOZIN
     Indication: Type 2 diabetes mellitus
     Dates: start: 202307, end: 202309
  2. METFORMIN [Concomitant]
     Active Substance: METFORMIN HYDROCHLORIDE
     Indication: Type 2 diabetes mellitus
     Dosage: CHANGE OF DOSE TO THIS 2 X 850 MG PER DAY UPON INITIATION OF JARDIANCE IN JULY 2023 (INITIAL DOSE WA
     Dates: start: 202307

REACTIONS (4)
  - Renal impairment [Unknown]
  - Glycosylated haemoglobin increased [Recovered/Resolved with Sequelae]
  - Nocturia [Recovered/Resolved]
  - Balanoposthitis [Recovered/Resolved]

NARRATIVE: CASE EVENT DATE: 20230101
